FAERS Safety Report 4533638-1 (Version None)
Quarter: 2004Q4

REPORT INFORMATION
  Report Type: 
  Country: None (occurrence: None)
  Receive Date: 20041221
  Receipt Date: 20041209
  Transmission Date: 20050328
  Serious: Yes (Hospitalization, Other)
  Sender: FDA-Public Use
  Company Number: US-GLAXOSMITHKLINE-A0536745A

PATIENT
  Age: 72 Year
  Sex: Female

DRUGS (1)
  1. CITRUCEL SUGAR-FREE SUSPENSION ORANGE [Suspect]
     Indication: GASTROINTESTINAL DISORDER
     Dosage: 1TBS PER DAY
     Route: 048
     Dates: start: 19990101

REACTIONS (6)
  - ABDOMINAL PAIN UPPER [None]
  - HIATUS HERNIA [None]
  - HOARSENESS [None]
  - LUNG DISORDER [None]
  - LUNG NEOPLASM MALIGNANT [None]
  - SINUS DISORDER [None]
